FAERS Safety Report 7016790-8 (Version None)
Quarter: 2010Q3

REPORT INFORMATION
  Report Type: 
  Country: None (occurrence: None)
  Receive Date: 20100909
  Receipt Date: 20100909
  Transmission Date: 20110219
  Serious: No
  Sender: FDA-Public Use
  Company Number: 2010SP034621

PATIENT
  Age: 40 Year
  Sex: Female

DRUGS (1)
  1. SAPHRIS [Suspect]
     Indication: SCHIZOAFFECTIVE DISORDER
     Dosage: SL
     Route: 059
     Dates: start: 20100301, end: 20100616

REACTIONS (3)
  - GLOSSODYNIA [None]
  - LIP DRY [None]
  - LIP HAEMORRHAGE [None]
